FAERS Safety Report 15403513 (Version 8)
Quarter: 2022Q3

REPORT INFORMATION
  Report Type: Report from Study
  Country: CN (occurrence: CN)
  Receive Date: 20180919
  Receipt Date: 20220823
  Transmission Date: 20221027
  Serious: Yes (Death, Hospitalization, Other)
  Sender: FDA-Public Use
  Company Number: CN-JNJFOC-20180716271

PATIENT
  Age: 27 Year
  Sex: Female
  Weight: 40.5 kg

DRUGS (15)
  1. SIRTURO [Suspect]
     Active Substance: BEDAQUILINE FUMARATE
     Indication: Tuberculosis
     Route: 048
     Dates: start: 20180524, end: 20180606
  2. SIRTURO [Suspect]
     Active Substance: BEDAQUILINE FUMARATE
     Route: 048
     Dates: start: 20180608, end: 20180725
  3. SIRTURO [Suspect]
     Active Substance: BEDAQUILINE FUMARATE
     Route: 048
     Dates: start: 20180803, end: 20180911
  4. MOXIFLOXACIN [Suspect]
     Active Substance: MOXIFLOXACIN
     Indication: Tuberculosis
     Route: 065
     Dates: start: 20180524, end: 20180601
  5. MOXIFLOXACIN [Suspect]
     Active Substance: MOXIFLOXACIN
     Route: 048
     Dates: start: 20180602, end: 20180621
  6. CLOFAZIMINE [Suspect]
     Active Substance: CLOFAZIMINE
     Indication: Tuberculosis
     Route: 048
     Dates: start: 20180524, end: 20180725
  7. CLOFAZIMINE [Suspect]
     Active Substance: CLOFAZIMINE
     Route: 048
     Dates: start: 20180803, end: 20180911
  8. PROTIONAMIDE [Suspect]
     Active Substance: PROTIONAMIDE
     Indication: Tuberculosis
     Route: 048
     Dates: start: 20180524, end: 20180807
  9. PROTIONAMIDE [Suspect]
     Active Substance: PROTIONAMIDE
     Route: 048
     Dates: start: 20180803, end: 20180814
  10. CAPREOMYCIN [Suspect]
     Active Substance: CAPREOMYCIN
     Indication: Tuberculosis
     Route: 065
     Dates: start: 20180524, end: 20180725
  11. CAPREOMYCIN [Suspect]
     Active Substance: CAPREOMYCIN
     Route: 065
     Dates: start: 20180806, end: 20180911
  12. LINEZOLID [Suspect]
     Active Substance: LINEZOLID
     Indication: Tuberculosis
     Route: 048
     Dates: start: 20180524, end: 20180725
  13. LINEZOLID [Suspect]
     Active Substance: LINEZOLID
     Route: 048
     Dates: start: 20180803, end: 20180911
  14. TRIMETAZIDINE [Concomitant]
     Active Substance: TRIMETAZIDINE
     Route: 065
     Dates: start: 20180622
  15. METOPROLOL [Concomitant]
     Active Substance: METOPROLOL
     Route: 065
     Dates: start: 20180706

REACTIONS (5)
  - Cardio-respiratory arrest [Fatal]
  - Hepatotoxicity [Recovering/Resolving]
  - Seizure [Recovering/Resolving]
  - Syncope [Unknown]
  - Electrocardiogram QT prolonged [Recovering/Resolving]

NARRATIVE: CASE EVENT DATE: 20180621
